FAERS Safety Report 9639234 (Version 5)
Quarter: 2013Q4

REPORT INFORMATION
  Report Type: Spontaneous
  Country: US (occurrence: None)
  Receive Date: 20131009
  Receipt Date: 20131107
  Transmission Date: 20140711
  Serious: Yes (Other)
  Sender: FDA-Public Use
  Company Number: 2013038331

PATIENT
  Age: 54 Year
  Sex: Male
  Weight: 108.86 kg

DRUGS (10)
  1. ZEMAIRA [Suspect]
     Indication: ALPHA-1 ANTI-TRYPSIN DEFICIENCY
     Route: 042
     Dates: start: 20131003, end: 20131003
  2. ALBUTEROL(SALBUTAMOL) [Concomitant]
  3. DIPHENHYDRAMINE(DIPHENHYDRAMINE) [Concomitant]
  4. HEPARIN(HEPARIN) [Concomitant]
  5. LIDOCAINE/PRILOCAINE [Concomitant]
  6. EPI-PEN(EPINEPHRINE HYDROCHLORIDE) [Concomitant]
  7. NADOLOL(NADOLOL) [Concomitant]
  8. AZITHROMYCIN (AZITHROMYCIN) [Concomitant]
  9. ADVAIR(SERETIDE) [Concomitant]
  10. SPIRIVA(TIOTROPIUM BROMIDE) [Concomitant]

REACTIONS (16)
  - Back pain [None]
  - Chest discomfort [None]
  - Chest pain [None]
  - Infusion related reaction [None]
  - Musculoskeletal pain [None]
  - Arthralgia [None]
  - Muscle spasms [None]
  - Burning sensation [None]
  - Drug hypersensitivity [None]
  - Pyrexia [None]
  - Anxiety [None]
  - Dyspnoea [None]
  - Blood pressure diastolic increased [None]
  - Respiratory rate increased [None]
  - Incorrect drug administration rate [None]
  - Blood pressure increased [None]
